FAERS Safety Report 7294708-0 (Version None)
Quarter: 2011Q1

REPORT INFORMATION
  Report Type: 
  Country: None (occurrence: None)
  Receive Date: 20110207
  Receipt Date: 20110125
  Transmission Date: 20110831
  Serious: Yes (Death, Hospitalization)
  Sender: FDA-Public Use
  Company Number: KADN20110007

PATIENT
  Age: 45 Year
  Sex: Male

DRUGS (1)
  1. MORPHINE [Suspect]
     Indication: PRODUCT USED FOR UNKNOWN INDICATION
     Dates: end: 20090101

REACTIONS (10)
  - HEART RATE DECREASED [None]
  - ELECTROCARDIOGRAM QRS COMPLEX PROLONGED [None]
  - NEUROLOGICAL DECOMPENSATION [None]
  - PULSELESS ELECTRICAL ACTIVITY [None]
  - BUNDLE BRANCH BLOCK RIGHT [None]
  - PUPIL FIXED [None]
  - DIALYSIS [None]
  - ELECTROCARDIOGRAM QT PROLONGED [None]
  - RENAL IMPAIRMENT [None]
  - HYPOTENSION [None]
